FAERS Safety Report 9948563 (Version 1)
Quarter: 2014Q1

REPORT INFORMATION
  Report Type: Report from Study
  Country: US (occurrence: US)
  Receive Date: 20140303
  Receipt Date: 20140303
  Transmission Date: 20141002
  Serious: No
  Sender: FDA-Public Use
  Company Number: US-ABBVIE-13P-163-1057277-00

PATIENT
  Age: 32 Year
  Sex: Female
  Weight: 77.18 kg

DRUGS (5)
  1. HUMIRA [Suspect]
     Indication: PSORIASIS
     Dates: start: 20120818
  2. ESTRADIOL [Concomitant]
     Indication: HORMONE REPLACEMENT THERAPY
  3. FIBER [Concomitant]
     Indication: SUPPLEMENTATION THERAPY
  4. MEDROXYPROGESTERONE ACETATE [Concomitant]
     Indication: MENSTRUATION IRREGULAR
  5. MULTIVITAMIN [Concomitant]
     Indication: SUPPLEMENTATION THERAPY

REACTIONS (1)
  - Psoriasis [Not Recovered/Not Resolved]
